FAERS Safety Report 19959747 (Version 1)
Quarter: 2021Q4

REPORT INFORMATION
  Report Type: Spontaneous
  Country: US (occurrence: US)
  Receive Date: 20211013
  Receipt Date: 20211013
  Transmission Date: 20220303
  Serious: Yes (Death)
  Sender: FDA-Public Use
  Company Number: None

PATIENT
  Sex: Female

DRUGS (1)
  1. KEYTRUDA [Suspect]
     Active Substance: PEMBROLIZUMAB
     Indication: Uterine cancer
     Dosage: ?          OTHER FREQUENCY:EVERY 21 DAYS;
     Route: 042
     Dates: start: 20210507

REACTIONS (5)
  - Septic shock [None]
  - Aspiration [None]
  - Pneumonia [None]
  - Cardiac arrest [None]
  - Hypoxia [None]
